FAERS Safety Report 22192768 (Version 1)
Quarter: 2023Q2

REPORT INFORMATION
  Report Type: Spontaneous
  Country: US (occurrence: None)
  Receive Date: 20230410
  Receipt Date: 20230410
  Transmission Date: 20230722
  Serious: No
  Sender: FDA-Public Use
  Company Number: US-Eisai Medical Research-EC-2023-135560

PATIENT
  Age: 4 Year
  Sex: Female

DRUGS (5)
  1. FYCOMPA [Suspect]
     Active Substance: PERAMPANEL
     Indication: Seizure
     Route: 048
  2. FYCOMPA [Suspect]
     Active Substance: PERAMPANEL
     Dosage: UP TITRATION
     Route: 048
  3. FYCOMPA [Suspect]
     Active Substance: PERAMPANEL
     Route: 048
  4. EPIDIOLEX [Concomitant]
     Active Substance: CANNABIDIOL
  5. DEPAKOTE [Concomitant]
     Active Substance: DIVALPROEX SODIUM

REACTIONS (3)
  - Hypotonia [Unknown]
  - Muscular weakness [Unknown]
  - Abnormal behaviour [Unknown]
